FAERS Safety Report 8242726-8 (Version None)
Quarter: 2012Q1

REPORT INFORMATION
  Report Type: 
  Country: None (occurrence: None)
  Receive Date: 20120329
  Receipt Date: 20120321
  Transmission Date: 20120608
  Serious: Yes (Hospitalization, Other)
  Sender: FDA-Public Use
  Company Number: US-BAYER-2011-080625

PATIENT
  Age: 47 Year
  Sex: Female
  Weight: 90.703 kg

DRUGS (6)
  1. YAZ [Suspect]
     Dosage: UNK
     Dates: start: 20070101, end: 20100101
  2. PROPRANOLOL HYDROCHLORIDE [Concomitant]
     Dosage: 20 MG, UNK
  3. ABILIFY [Concomitant]
     Dosage: 5 MG, UNK
  4. STRATTERA [Concomitant]
     Dosage: 25 MG, UNK
  5. VENLAFAXINE [Concomitant]
     Dosage: 75 MG, UNK
  6. PROZAC [Concomitant]
     Dosage: UNK MG, UNK

REACTIONS (5)
  - CHOLECYSTECTOMY [None]
  - DEPRESSION [None]
  - CHOLECYSTITIS CHRONIC [None]
  - MENTAL DISORDER [None]
  - INJURY [None]
